FAERS Safety Report 9846202 (Version 1)
Quarter: 2014Q1

REPORT INFORMATION
  Report Type: Spontaneous
  Country: US (occurrence: US)
  Receive Date: 20140127
  Receipt Date: 20140127
  Transmission Date: 20141002
  Serious: Yes (Hospitalization)
  Sender: FDA-Public Use
  Company Number: US-PFIZER INC-2014020694

PATIENT
  Age: 88 Year
  Sex: Female
  Weight: 79.8 kg

DRUGS (1)
  1. PREMARIN [Suspect]
     Dosage: 1.25 MG, 1X/DAY
     Route: 048
     Dates: start: 1956

REACTIONS (6)
  - Cardiac disorder [Unknown]
  - Nervousness [Unknown]
  - Abdominal discomfort [Unknown]
  - Anxiety [Unknown]
  - Tremor [Unknown]
  - Gait disturbance [Unknown]
